FAERS Safety Report 8578261-7 (Version None)
Quarter: 2012Q3

REPORT INFORMATION
  Report Type: 
  Country: None (occurrence: None)
  Receive Date: 20120808
  Receipt Date: 20120731
  Transmission Date: 20120928
  Serious: Yes (Hospitalization)
  Sender: FDA-Public Use
  Company Number: US-BAYER-2010-000592

PATIENT
  Age: 35 Year
  Sex: Female
  Weight: 102.95 kg

DRUGS (10)
  1. TORADOL [Concomitant]
     Indication: HEADACHE
     Dosage: UNK
     Route: 042
  2. ALPRAZOLAM [Concomitant]
     Indication: ANXIETY
  3. LORCET-HD [Concomitant]
  4. CELEXA [Concomitant]
  5. PROTONIX [Concomitant]
  6. YAZ [Suspect]
     Dosage: UNK
     Dates: start: 20061019, end: 20080401
  7. DROSPIRENONE AND ETHINYL ESTRADIOL [Suspect]
  8. GERITOL [VITAMINS NOS] [Concomitant]
     Indication: VITAMIN SUPPLEMENTATION
     Dosage: UNK
     Dates: start: 20080301
  9. YASMIN [Suspect]
  10. TOPAMAX [Concomitant]

REACTIONS (4)
  - MENTAL DISORDER [None]
  - DECREASED ACTIVITY [None]
  - PULMONARY EMBOLISM [None]
  - DYSPNOEA [None]
